FAERS Safety Report 8546532-6 (Version None)
Quarter: 2012Q3

REPORT INFORMATION
  Report Type: 
  Country: None (occurrence: None)
  Receive Date: 20120727
  Receipt Date: 20120718
  Transmission Date: 20120928
  Serious: Yes (Hospitalization, Other)
  Sender: FDA-Public Use
  Company Number: US-ASTRAZENECA-2003UW01422

PATIENT
  Age: 89 Year
  Sex: Female
  Weight: 63.5 kg

DRUGS (8)
  1. NEXIUM [Suspect]
     Dosage: 40 MG
     Route: 048
     Dates: start: 20080701
  2. TOPROL-XL [Suspect]
     Route: 048
  3. ASPIRIN [Concomitant]
  4. ATACAND [Concomitant]
  5. VALSARTAN [Concomitant]
  6. LEVOTHROID [Concomitant]
  7. NEXIUM [Suspect]
     Route: 048
  8. NEXIUM [Suspect]
     Indication: GASTROOESOPHAGEAL REFLUX DISEASE
     Route: 048

REACTIONS (13)
  - ABDOMINAL DISCOMFORT [None]
  - ORAL DISCOMFORT [None]
  - DRUG INEFFECTIVE [None]
  - GLOSSODYNIA [None]
  - NAUSEA [None]
  - PAIN IN EXTREMITY [None]
  - GASTROOESOPHAGEAL REFLUX DISEASE [None]
  - CHOKING SENSATION [None]
  - CHEST PAIN [None]
  - DYSPEPSIA [None]
  - MENISCUS LESION [None]
  - TINNITUS [None]
  - ABDOMINAL PAIN [None]
